FAERS Safety Report 9685650 (Version 1)
Quarter: 2013Q4

REPORT INFORMATION
  Report Type: Spontaneous
  Country: US (occurrence: US)
  Receive Date: 20131113
  Receipt Date: 20131113
  Transmission Date: 20140711
  Serious: No
  Sender: FDA-Public Use
  Company Number: US-GLAXOSMITHKLINE-A1038221A

PATIENT
  Age: 55 Year
  Sex: Female

DRUGS (4)
  1. COREG [Suspect]
     Indication: CARDIAC DISORDER
     Dosage: 3.125MG TWICE PER DAY
     Route: 048
     Dates: start: 2007
  2. KEFLEX [Concomitant]
  3. ASPIRIN [Concomitant]
  4. PLAVIX [Concomitant]

REACTIONS (1)
  - Rash [Not Recovered/Not Resolved]
